FAERS Safety Report 5781773-2 (Version None)
Quarter: 2008Q2

REPORT INFORMATION
  Report Type: 
  Country: None (occurrence: None)
  Receive Date: 20080613
  Receipt Date: 20080610
  Transmission Date: 20081010
  Serious: No
  Sender: FDA-Public Use
  Company Number: 200813560

PATIENT
  Age: 17 Year
  Sex: Female

DRUGS (2)
  1. SANDOGLOBULIN [Suspect]
     Dosage: IV
     Route: 042
  2. SANDOGLOBULIN [Suspect]

REACTIONS (3)
  - HEPATITIS C [None]
  - THERAPEUTIC PRODUCT CONTAMINATION [None]
  - TRANSMISSION OF AN INFECTIOUS AGENT VIA A MEDICINAL PRODUCT [None]
